FAERS Safety Report 13243722 (Version 1)
Quarter: 2017Q1

REPORT INFORMATION
  Report Type: Spontaneous
  Country: EG (occurrence: EG)
  Receive Date: 20170216
  Receipt Date: 20170216
  Transmission Date: 20170428
  Serious: Yes (Hospitalization)
  Sender: FDA-Public Use
  Company Number: EG-IMPAX LABORATORIES, INC-2017-IPXL-00300

PATIENT
  Age: 50 Year
  Sex: Female

DRUGS (2)
  1. ADRENACLICK [Suspect]
     Active Substance: EPINEPHRINE
     Indication: WRONG DRUG ADMINISTERED
     Dosage: 0.25 MG, UNK
     Route: 042
  2. PETHIDINE [Concomitant]
     Active Substance: MEPERIDINE
     Indication: SEDATION
     Dosage: 50 MG
     Route: 065

REACTIONS (7)
  - Respiratory distress [Recovered/Resolved]
  - Incorrect product storage [Unknown]
  - Restlessness [Recovered/Resolved]
  - Tremor [Recovered/Resolved]
  - Chest discomfort [Recovered/Resolved]
  - Wrong drug administered [Unknown]
  - Product packaging confusion [Unknown]
